FAERS Safety Report 22062272 (Version 10)
Quarter: 2024Q3

REPORT INFORMATION
  Report Type: Report from Study
  Country: US (occurrence: US)
  Receive Date: 20230305
  Receipt Date: 20240715
  Transmission Date: 20241017
  Serious: Yes (Hospitalization)
  Sender: NOVARTIS
  Company Number: US-002147023-NVSC2023US048999

PATIENT
  Age: 58 Year
  Sex: Female

DRUGS (2)
  1. KESIMPTA [Suspect]
     Active Substance: OFATUMUMAB
     Indication: Product used for unknown indication
     Dosage: UNK UNK, QW
     Route: 065
     Dates: start: 20140214
  2. KESIMPTA [Suspect]
     Active Substance: OFATUMUMAB
     Dosage: UNK UNK, QMO (FIRST MONTHLY INJECTION)
     Route: 065
     Dates: start: 20140314

REACTIONS (9)
  - Optic neuritis [Unknown]
  - Glucose tolerance impaired [Unknown]
  - Hypertension [Unknown]
  - Balance disorder [Unknown]
  - Pain [Recovered/Resolved]
  - Gait disturbance [Unknown]
  - Fall [Unknown]
  - Fatigue [Unknown]
  - Back pain [Recovered/Resolved]

NARRATIVE: CASE EVENT DATE: 20230222
